FAERS Safety Report 13906437 (Version 1)
Quarter: 2017Q3

REPORT INFORMATION
  Report Type: Spontaneous
  Country: US (occurrence: US)
  Receive Date: 20170825
  Receipt Date: 20170825
  Transmission Date: 20171127
  Serious: Yes (Life-Threatening)
  Sender: FDA-Public Use
  Company Number: PHHY2017US123130

PATIENT
  Age: 28 Year
  Sex: Female

DRUGS (20)
  1. CEFTRIAXONE. [Suspect]
     Active Substance: CEFTRIAXONE
     Indication: OROPHARYNGEAL PAIN
  2. MEROPENEM. [Suspect]
     Active Substance: MEROPENEM
     Indication: PYREXIA
  3. LEVOFLOXACIN. [Suspect]
     Active Substance: LEVOFLOXACIN
     Indication: ARTHRALGIA
  4. LEVOFLOXACIN. [Suspect]
     Active Substance: LEVOFLOXACIN
     Indication: PYREXIA
  5. DOXYCYCLINE. [Suspect]
     Active Substance: DOXYCYCLINE
     Indication: ARTHRALGIA
  6. MEROPENEM. [Suspect]
     Active Substance: MEROPENEM
     Indication: RASH GENERALISED
     Route: 065
  7. VANCOMYCIN [Suspect]
     Active Substance: VANCOMYCIN
     Indication: OROPHARYNGEAL PAIN
  8. VANCOMYCIN [Suspect]
     Active Substance: VANCOMYCIN
     Indication: PYREXIA
  9. CEFTRIAXONE. [Suspect]
     Active Substance: CEFTRIAXONE
     Indication: RASH GENERALISED
     Route: 065
  10. CEFTRIAXONE. [Suspect]
     Active Substance: CEFTRIAXONE
     Indication: PYREXIA
  11. DOXYCYCLINE. [Suspect]
     Active Substance: DOXYCYCLINE
     Indication: RASH GENERALISED
     Route: 065
  12. DOXYCYCLINE. [Suspect]
     Active Substance: DOXYCYCLINE
     Indication: OROPHARYNGEAL PAIN
  13. LEVOFLOXACIN. [Suspect]
     Active Substance: LEVOFLOXACIN
     Indication: RASH GENERALISED
     Route: 065
  14. LEVOFLOXACIN. [Suspect]
     Active Substance: LEVOFLOXACIN
     Indication: OROPHARYNGEAL PAIN
  15. VANCOMYCIN [Suspect]
     Active Substance: VANCOMYCIN
     Indication: RASH GENERALISED
     Route: 065
  16. MEROPENEM. [Suspect]
     Active Substance: MEROPENEM
     Indication: ARTHRALGIA
  17. MEROPENEM. [Suspect]
     Active Substance: MEROPENEM
     Indication: OROPHARYNGEAL PAIN
  18. VANCOMYCIN [Suspect]
     Active Substance: VANCOMYCIN
     Indication: ARTHRALGIA
  19. CEFTRIAXONE. [Suspect]
     Active Substance: CEFTRIAXONE
     Indication: ARTHRALGIA
  20. DOXYCYCLINE. [Suspect]
     Active Substance: DOXYCYCLINE
     Indication: PYREXIA

REACTIONS (9)
  - Pyrexia [Recovered/Resolved]
  - Rash generalised [Recovered/Resolved]
  - Leukocytosis [Recovered/Resolved]
  - Arthralgia [Recovered/Resolved]
  - Hepatomegaly [Recovered/Resolved]
  - Drug reaction with eosinophilia and systemic symptoms [Recovered/Resolved]
  - Histiocytosis haematophagic [Recovered/Resolved]
  - Eosinophilia [Recovered/Resolved]
  - Oropharyngeal pain [Recovered/Resolved]
